FAERS Safety Report 21153651 (Version 1)
Quarter: 2022Q3

REPORT INFORMATION
  Report Type: Report from Study
  Country: US (occurrence: US)
  Receive Date: 20220801
  Receipt Date: 20220801
  Transmission Date: 20221026
  Serious: Yes (Other)
  Sender: FDA-Public Use
  Company Number: US-ABBVIE-22K-163-4487382-00

PATIENT
  Sex: Male

DRUGS (1)
  1. IMBRUVICA [Suspect]
     Active Substance: IBRUTINIB
     Indication: Product used for unknown indication
     Dosage: MISSED ONE PILL
     Route: 048

REACTIONS (3)
  - Ear haemorrhage [Recovered/Resolved]
  - Deafness unilateral [Unknown]
  - Ear disorder [Unknown]
